FAERS Safety Report 6038995-5 (Version None)
Quarter: 2009Q1

REPORT INFORMATION
  Report Type: 
  Country: None (occurrence: None)
  Receive Date: 20090115
  Receipt Date: 20090105
  Transmission Date: 20090719
  Serious: Yes (Hospitalization)
  Sender: FDA-Public Use
  Company Number: ES-ELI_LILLY_AND_COMPANY-ES200901000727

PATIENT
  Age: 64 Year
  Sex: Male

DRUGS (4)
  1. FORTEO [Suspect]
     Indication: OSTEOPOROSIS
     Dosage: 20 UG, UNKNOWN
     Route: 058
     Dates: start: 20080901, end: 20081229
  2. CORTICOSTEROIDS [Concomitant]
     Dosage: UNK, UNKNOWN
     Route: 065
  3. VENTOLIN [Concomitant]
     Indication: ASTHMA
     Dosage: UNK, UNKNOWN
     Route: 048
  4. VENTOLIN [Concomitant]
     Dosage: UNK, UNKNOWN
     Route: 042

REACTIONS (2)
  - RESPIRATORY DISORDER [None]
  - RESPIRATORY TRACT INFECTION BACTERIAL [None]
